FAERS Safety Report 17884598 (Version 1)
Quarter: 2020Q2

REPORT INFORMATION
  Report Type: Spontaneous
  Country: NL (occurrence: NL)
  Receive Date: 20200611
  Receipt Date: 20200611
  Transmission Date: 20200714
  Serious: Yes (Death, Hospitalization)
  Sender: FDA-Public Use
  Company Number: NL-TEVA-2020-NL-1246202

PATIENT
  Age: 80 Year
  Sex: Male
  Weight: 82 kg

DRUGS (10)
  1. FLIXOTIDE 250MCG [Concomitant]
     Indication: CHRONIC OBSTRUCTIVE PULMONARY DISEASE
     Dosage: 3DD I.V.M., (750 MCG)THERAPY START AND END DATE: ASKED BUT UNKNOWN
  2. GINKGO BILOBA [Concomitant]
     Active Substance: GINKGO
     Dosage: THERAPY START AND END DATE: ASKED BUT UNKNOWN
  3. ATROVENT 20MCG [Concomitant]
     Indication: CHRONIC OBSTRUCTIVE PULMONARY DISEASE
     Dosage: 4DD2 I.C.M., (160 MCG), THERAPY START AND END DATE: ASKED BUT UNKNOWN
  4. FORADIL 12MCG [Concomitant]
     Indication: CHRONIC OBSTRUCTIVE PULMONARY DISEASE
     Dosage: 3DD1 I.V.M. COPD, (36 MCG)
  5. ACETYLSALICYLZUUR 80MG [Concomitant]
     Indication: ATRIAL FIBRILLATION
     Dosage: 80 MILLIGRAM DAILY; THERAPY START AND END DATE: ASKED BUT UNKNOWN
  6. SURAZEM 180MG [Concomitant]
     Dosage: SURAZEM 180 MG CAPSULE MGA, THERAPY START AND END DATE: ASKED BUT UNKNOWN
  7. ACETYLCYSTEINE 600MG [Concomitant]
     Indication: CHRONIC OBSTRUCTIVE PULMONARY DISEASE
     Dosage: 3DD1 I.V.M., (1800 MG), THERAPY START AND END DATE: ASKED BUT UNKNOWN
  8. AMOXI/CLAVULAANZUUR 500/125 [Suspect]
     Active Substance: AMOXICILLIN\CLAVULANATE POTASSIUM
     Indication: PNEUMONIA
     Dosage: 3 DOSAGE FORMS DAILY;
     Dates: start: 20040206, end: 20040212
  9. LENDORMIN 0,25MG [Concomitant]
     Active Substance: BROTIZOLAM
     Indication: SLEEP DISORDER
     Dosage: 1 DOSAGE FORMS DAILY; THERAPY START AND END DATE: ASKED BUT UNKNOWN
  10. SURAZEM 180MG [Concomitant]
     Indication: ATRIAL FIBRILLATION
     Dosage: 180 MILLIGRAM DAILY;  I.V.M. , THERAPY START AND END DATE: ASKED BUT UNKNOWN

REACTIONS (2)
  - Hepatitis cholestatic [Fatal]
  - Death [Fatal]

NARRATIVE: CASE EVENT DATE: 20040220
